FAERS Safety Report 16807150 (Version 2)
Quarter: 2019Q4

REPORT INFORMATION
  Report Type: Report from Study
  Country: BR (occurrence: BR)
  Receive Date: 20190913
  Receipt Date: 20191106
  Transmission Date: 20200122
  Serious: Yes (Hospitalization, Other)
  Sender: FDA-Public Use
  Company Number: PHHY2019BR156978

PATIENT
  Age: 63 Year
  Sex: Female

DRUGS (3)
  1. COSENTYX [Suspect]
     Active Substance: SECUKINUMAB
     Dosage: UNK
     Route: 065
     Dates: start: 20190918
  2. COSENTYX [Suspect]
     Active Substance: SECUKINUMAB
     Indication: PSORIATIC ARTHROPATHY
     Dosage: 300 MG, UNK
     Route: 065
     Dates: start: 20190111
  3. COSENTYX [Suspect]
     Active Substance: SECUKINUMAB
     Indication: ANKYLOSING SPONDYLITIS
     Dosage: UNK
     Route: 065
     Dates: start: 20190808

REACTIONS (11)
  - Chest pain [Unknown]
  - Hypokinesia [Unknown]
  - Peripheral swelling [Not Recovered/Not Resolved]
  - Spondylitis [Unknown]
  - Therapeutic response shortened [Not Recovered/Not Resolved]
  - Cellulitis [Unknown]
  - Myocardial infarction [Recovering/Resolving]
  - Pain [Not Recovered/Not Resolved]
  - Back pain [Unknown]
  - Pain in extremity [Unknown]
  - Emotional distress [Unknown]

NARRATIVE: CASE EVENT DATE: 20190111
